FAERS Safety Report 9803996 (Version 4)
Quarter: 2014Q1

REPORT INFORMATION
  Report Type: Report from Study
  Country: BE (occurrence: BE)
  Receive Date: 20140108
  Receipt Date: 20140328
  Transmission Date: 20141002
  Serious: Yes (Hospitalization)
  Sender: FDA-Public Use
  Company Number: BE-ROCHE-1326476

PATIENT
  Age: 83 Year
  Sex: Female
  Weight: 65.4 kg

DRUGS (29)
  1. TRASTUZUMAB [Suspect]
     Indication: HER-2 POSITIVE GASTRIC CANCER
     Dosage: MOST RECET DOSE PRIOR TO SERIOUS ADVERS EVENT 28/NOV/2013.??LOADING DOSE  533MG
     Route: 042
     Dates: start: 20131128
  2. CAPECITABINE [Suspect]
     Indication: HER-2 POSITIVE GASTRIC CANCER
     Dosage: MOST RECENT DOSE PRIOR TO SAE 28/NOV/2013
     Route: 048
     Dates: end: 20131128
  3. FLUOROURACIL [Suspect]
     Indication: HER-2 POSITIVE GASTRIC CANCER
     Dosage: LAST DOSE PRIOR TO EVENT: 28/NOV/2013
     Route: 065
     Dates: start: 20131128
  4. CISPLATIN [Suspect]
     Indication: HER-2 POSITIVE GASTRIC CANCER
     Dosage: LAST DOSE PRIOR TO EVENT: 28/NOV/2013
     Route: 042
     Dates: start: 20131128
  5. LISINOPRIL [Concomitant]
     Indication: HYPERTENSION
     Route: 048
     Dates: start: 2010
  6. PANTOMED (BELGIUM) [Concomitant]
     Route: 048
     Dates: start: 20110201
  7. GLUCOPHAGE [Concomitant]
     Indication: DIABETES MELLITUS
     Route: 048
  8. TENORMIN [Concomitant]
     Indication: HYPERTENSION
     Route: 048
  9. DAFALGAN [Concomitant]
     Indication: PAIN
     Route: 048
     Dates: start: 20101021
  10. EMEND [Concomitant]
     Indication: NAUSEA
     Route: 048
     Dates: start: 20131130, end: 20131201
  11. CIPROXINE [Concomitant]
     Indication: URINARY TRACT INFECTION
     Route: 048
     Dates: start: 20131128, end: 20131206
  12. ONDANSETRON [Concomitant]
     Indication: NAUSEA
     Route: 048
     Dates: start: 20131129, end: 20131201
  13. ONDANSETRON [Concomitant]
     Indication: NAUSEA
     Route: 048
     Dates: start: 20131128, end: 20131201
  14. AUGMENTIN [Concomitant]
     Indication: INFECTION
     Route: 048
     Dates: start: 20131217, end: 20131224
  15. AMLOR [Concomitant]
     Indication: HYPERTENSION
     Route: 048
     Dates: start: 20131204
  16. ASAFLOW [Concomitant]
     Indication: CARDIAC DISORDER
     Route: 048
     Dates: start: 20131204
  17. CORUNO [Concomitant]
     Indication: CARDIAC DISORDER
     Route: 048
     Dates: start: 20131204
  18. MOTILIUM [Concomitant]
     Indication: NAUSEA
     Route: 048
     Dates: start: 20131204
  19. TRADONAL [Concomitant]
     Indication: PAIN
     Route: 048
     Dates: start: 20131204
  20. ZESTRIL [Concomitant]
     Indication: HYPERTENSION
     Route: 048
     Dates: start: 20131204
  21. BLOOD TRANSFUSION [Concomitant]
     Indication: ANAEMIA
     Route: 065
     Dates: start: 20131218, end: 20131219
  22. LIDOCAINE [Concomitant]
     Indication: MUCOSAL INFLAMMATION
     Route: 065
     Dates: start: 20131204
  23. GLUCOSE [Concomitant]
     Indication: RENAL FAILURE
     Route: 042
     Dates: start: 20131204, end: 20131213
  24. EUSAPRIM FORTE [Concomitant]
     Route: 048
     Dates: start: 20140111, end: 20140111
  25. EUSAPRIM [Concomitant]
     Route: 042
     Dates: start: 20140111, end: 20140111
  26. EUSAPRIM [Concomitant]
     Dosage: SELECT IF ONGOING=NO
     Route: 042
     Dates: start: 20140112, end: 20140121
  27. EUSAPRIM [Concomitant]
     Dosage: SELECT IF ONGOING=NO
     Route: 042
     Dates: start: 20140122, end: 20140122
  28. DEXAMETHASONE [Concomitant]
     Indication: NAUSEA
     Route: 042
     Dates: start: 20131128, end: 20131128
  29. PERTUZUMAB [Suspect]
     Indication: HER-2 POSITIVE GASTRIC CANCER
     Dosage: LAST DOSE PRIOR TO EVENT: 28/NOV/2013
     Route: 042
     Dates: start: 20131128

REACTIONS (1)
  - Renal failure [Recovered/Resolved]
